FAERS Safety Report 9162883 (Version 1)
Quarter: 2013Q1

REPORT INFORMATION
  Report Type: Spontaneous
  Country: FR (occurrence: FR)
  Receive Date: 20130314
  Receipt Date: 20130314
  Transmission Date: 20140127
  Serious: Yes (Hospitalization)
  Sender: FDA-Public Use
  Company Number: FR-PFIZER INC-2013082832

PATIENT
  Age: 82 Year
  Sex: Male

DRUGS (7)
  1. AMLOR [Suspect]
     Dosage: UNK
     Route: 048
  2. ANAFRANIL [Suspect]
     Dosage: UNK
     Route: 048
  3. APROVEL [Suspect]
     Dosage: UNK
     Route: 048
  4. CORVASAL [Suspect]
     Dosage: UNK
     Route: 048
  5. DAONIL [Suspect]
     Dosage: UNK
     Route: 048
  6. JANUMET [Suspect]
     Dosage: UNK
     Route: 048
  7. LASILIX [Suspect]
     Dosage: UNK
     Route: 048

REACTIONS (1)
  - Hyponatraemia [Not Recovered/Not Resolved]
